FAERS Safety Report 25088211 (Version 5)
Quarter: 2025Q3

REPORT INFORMATION
  Report Type: Spontaneous
  Country: GB (occurrence: GB)
  Receive Date: 20250318
  Receipt Date: 20250910
  Transmission Date: 20251021
  Serious: Yes (Other)
  Sender: MYLAN
  Company Number: GB-MYLANLABS-2025M1022558

PATIENT
  Sex: Male

DRUGS (1)
  1. CLOZARIL [Suspect]
     Active Substance: CLOZAPINE
     Indication: Schizophrenia

REACTIONS (7)
  - Chronic kidney disease [Unknown]
  - Anaemia [Unknown]
  - Glomerular filtration rate decreased [Not Recovered/Not Resolved]
  - Differential white blood cell count abnormal [Unknown]
  - Dizziness [Unknown]
  - Fall [Unknown]
  - Depressed mood [Unknown]

NARRATIVE: CASE EVENT DATE: 20250107
